FAERS Safety Report 5953950-9 (Version None)
Quarter: 2008Q4

REPORT INFORMATION
  Report Type: 
  Country: None (occurrence: None)
  Receive Date: 20081114
  Receipt Date: 20080825
  Transmission Date: 20090506
  Serious: Yes (Other)
  Sender: FDA-Public Use
  Company Number: US-GENENTECH-266931

PATIENT
  Age: 90 Year
  Sex: Male

DRUGS (2)
  1. LUCENTIS [Suspect]
     Indication: MACULAR DEGENERATION
     Dosage: UNK
     Route: 031
     Dates: start: 20070101
  2. LUCENTIS [Suspect]
     Dosage: UNK
     Route: 031
     Dates: start: 20070801

REACTIONS (1)
  - VISUAL ACUITY REDUCED [None]
